FAERS Safety Report 5622369-2 (Version None)
Quarter: 2008Q1

REPORT INFORMATION
  Report Type: 
  Country: None (occurrence: None)
  Receive Date: 20080114
  Receipt Date: 20070621
  Transmission Date: 20080703
  Serious: Yes (Hospitalization)
  Sender: FDA-Public Use
  Company Number: A03200704258

PATIENT
  Age: 76 Year
  Sex: Female
  Weight: 52.15 kg

DRUGS (3)
  1. PLAVIX [Suspect]
     Indication: STENT PLACEMENT
     Dosage: 75 MG QD, ORAL
     Route: 048
     Dates: start: 20061204, end: 20070514
  2. PLAVIX [Suspect]
     Indication: STENT PLACEMENT
     Dosage: 75 MG QOD, ORAL
     Route: 048
     Dates: start: 20070501, end: 20070815
  3. ASPIRIN [Suspect]
     Dosage: 81 MG QOD, ORAL
     Route: 048
     Dates: start: 20070501

REACTIONS (5)
  - ANAEMIA [None]
  - CONTUSION [None]
  - INTRA-ABDOMINAL HAEMATOMA [None]
  - PURPURA [None]
  - RECTAL HAEMORRHAGE [None]
